FAERS Safety Report 10694727 (Version 1)
Quarter: 2015Q1

REPORT INFORMATION
  Report Type: Spontaneous
  Country: IT (occurrence: IT)
  Receive Date: 20150107
  Receipt Date: 20150107
  Transmission Date: 20150721
  Serious: Yes (Hospitalization)
  Sender: FDA-Public Use
  Company Number: IT-ASTRAZENECA-2015SE00184

PATIENT
  Age: 47 Year
  Sex: Female

DRUGS (5)
  1. SEROQUEL [Suspect]
     Active Substance: QUETIAPINE FUMARATE
     Route: 048
     Dates: start: 20131208, end: 20131208
  2. TALOFEN [Concomitant]
     Active Substance: PROMAZINE HYDROCHLORIDE
  3. ENTACT [Concomitant]
     Active Substance: ESCITALOPRAM OXALATE
  4. RIVOTRIL [Concomitant]
     Active Substance: CLONAZEPAM
  5. ORAL DROPS [Concomitant]
     Route: 048

REACTIONS (3)
  - Drug abuse [Unknown]
  - Abdominal pain upper [Unknown]
  - Dizziness [Unknown]

NARRATIVE: CASE EVENT DATE: 20131208
